FAERS Safety Report 8545763-9 (Version None)
Quarter: 2012Q3

REPORT INFORMATION
  Report Type: 
  Country: None (occurrence: None)
  Receive Date: 20120727
  Receipt Date: 20120723
  Transmission Date: 20120928
  Serious: Yes (Life-Threatening, Hospitalization)
  Sender: FDA-Public Use
  Company Number: HR-ASTRAZENECA-2012SE50076

PATIENT
  Age: 17 Year
  Sex: Female

DRUGS (4)
  1. CLONAZEPAM [Concomitant]
     Indication: DEPRESSION
     Route: 048
     Dates: start: 20110101
  2. SEROQUEL XR [Suspect]
     Dosage: 20 TABLETS OF SEROQUEL XR OF 300 MG
     Route: 048
     Dates: start: 20120423
  3. PROZAC [Concomitant]
     Indication: DEPRESSION
     Route: 048
     Dates: start: 20110101
  4. FLUZEPAM [Concomitant]
     Indication: DEPRESSION
     Route: 048
     Dates: start: 20110101

REACTIONS (5)
  - SUICIDE ATTEMPT [None]
  - TOXICITY TO VARIOUS AGENTS [None]
  - BLOOD CREATINE PHOSPHOKINASE INCREASED [None]
  - BLOOD UREA DECREASED [None]
  - SOMNOLENCE [None]
